FAERS Safety Report 7458889-8 (Version None)
Quarter: 2011Q2

REPORT INFORMATION
  Report Type: 
  Country: None (occurrence: None)
  Receive Date: 20110504
  Receipt Date: 20110429
  Transmission Date: 20111010
  Serious: Yes (Hospitalization)
  Sender: FDA-Public Use
  Company Number: FI-BRISTOL-MYERS SQUIBB COMPANY-15707110

PATIENT
  Age: 33 Year
  Sex: Female

DRUGS (1)
  1. ABILIFY [Suspect]
     Indication: ACUTE PSYCHOSIS
     Dosage: 01-MAR-2011 TO 03-MAR-2011 :15MG
     Route: 048
     Dates: start: 20110226, end: 20110308

REACTIONS (1)
  - PSYCHOTIC DISORDER [None]
